FAERS Safety Report 6199020-9 (Version None)
Quarter: 2009Q2

REPORT INFORMATION
  Report Type: 
  Country: None (occurrence: None)
  Receive Date: 20090519
  Receipt Date: 20090519
  Transmission Date: 20091009
  Serious: Yes (Disabling)
  Sender: FDA-Public Use
  Company Number: None

PATIENT
  Age: 82 Year
  Sex: Male
  Weight: 79.3795 kg

DRUGS (2)
  1. LYRICA [Suspect]
     Indication: LIGAMENT PAIN
     Dosage: 100MG PRN PO
     Route: 048
     Dates: start: 20090420, end: 20090514
  2. LYRICA [Suspect]
     Indication: LIGAMENT PAIN
     Dosage: 100MG PRN PO
     Route: 048
     Dates: start: 20090430, end: 20090514

REACTIONS (1)
  - PITTING OEDEMA [None]
